FAERS Safety Report 25872756 (Version 1)
Quarter: 2025Q4

REPORT INFORMATION
  Report Type: Spontaneous
  Country: US (occurrence: US)
  Receive Date: 20251002
  Receipt Date: 20251002
  Transmission Date: 20260118
  Serious: No
  Sender: REVANCE THERAPEUTICS
  Company Number: US-REVANCE THERAPEUTICS INC.-US-REV-2025-000363

PATIENT

DRUGS (2)
  1. DAXIBOTULINUMTOXIN A-LANM [Suspect]
     Active Substance: DAXIBOTULINUMTOXIN A-LANM
     Indication: Skin wrinkling
     Dosage: 124 UNITS; 40 U IN GLABELLA, 12 U IN FRONTALIS, 48 U IN TEMPORALIS, 16 U IN NASALIS, 8 U IN MENTALIS
     Route: 065
     Dates: start: 20250523
  2. DIOVAN HCT [Concomitant]
     Active Substance: HYDROCHLOROTHIAZIDE\VALSARTAN
     Indication: Blood pressure abnormal
     Dosage: 80-12 MG, QD
     Route: 065

REACTIONS (6)
  - Eye pain [Unknown]
  - Neuromuscular toxicity [Unknown]
  - Muscular weakness [Unknown]
  - Diplopia [Unknown]
  - Eyelid ptosis [Unknown]
  - Off label use [Unknown]

NARRATIVE: CASE EVENT DATE: 20250523
